FAERS Safety Report 5117377-4 (Version None)
Quarter: 2006Q3

REPORT INFORMATION
  Report Type: 
  Country: None (occurrence: None)
  Receive Date: 20060926
  Receipt Date: 20060911
  Transmission Date: 20061208
  Serious: Yes (Hospitalization, Other)
  Sender: FDA-Public Use
  Company Number: 2006BI004761

PATIENT
  Age: 41 Year
  Sex: Male
  Weight: 52.1637 kg

DRUGS (8)
  1. AVONEX [Suspect]
     Indication: MULTIPLE SCLEROSIS
     Dosage: 30 UG QW IM
     Route: 030
     Dates: start: 20050319, end: 20060623
  2. VALIUM [Concomitant]
  3. MORPHINE [Concomitant]
  4. BLOOD THINNER (NOS) [Concomitant]
  5. ROXANOL [Concomitant]
  6. ATIVAN [Concomitant]
  7. TRILEPTAL [Concomitant]
  8. COPAXONE [Concomitant]

REACTIONS (15)
  - APHASIA [None]
  - BRAIN STEM SYNDROME [None]
  - CONDITION AGGRAVATED [None]
  - CONTUSION [None]
  - CONVULSION [None]
  - DECUBITUS ULCER [None]
  - FALL [None]
  - FEEDING DISORDER [None]
  - IMMOBILE [None]
  - JOINT INJURY [None]
  - MULTIPLE SCLEROSIS [None]
  - MULTIPLE SCLEROSIS RELAPSE [None]
  - PNEUMONIA [None]
  - STAPHYLOCOCCAL INFECTION [None]
  - URINARY TRACT INFECTION [None]
